FAERS Safety Report 24892952 (Version 1)
Quarter: 2025Q1

REPORT INFORMATION
  Report Type: Spontaneous
  Country: US (occurrence: US)
  Receive Date: 20250128
  Receipt Date: 20250128
  Transmission Date: 20250409
  Serious: Yes (Other)
  Sender: HIKMA
  Company Number: HIKM2500447

PATIENT
  Age: 49 Year
  Sex: Female

DRUGS (2)
  1. AMPHETAMINE [Suspect]
     Active Substance: AMPHETAMINE
     Indication: Product used for unknown indication
     Route: 065
  2. METHAMPHETAMINE [Suspect]
     Active Substance: METHAMPHETAMINE
     Indication: Product used for unknown indication
     Route: 065

REACTIONS (6)
  - Dysarthria [Unknown]
  - Slow speech [Unknown]
  - Hyperhidrosis [Unknown]
  - Injury [Unknown]
  - Homicide [Unknown]
  - Drug abuse [Unknown]
